FAERS Safety Report 5479995-3 (Version None)
Quarter: 2007Q4

REPORT INFORMATION
  Report Type: 
  Country: None (occurrence: None)
  Receive Date: 20071008
  Receipt Date: 20071001
  Transmission Date: 20080405
  Serious: Yes (Life-Threatening, Hospitalization)
  Sender: FDA-Public Use
  Company Number: FR-ABBOTT-07P-056-0415738-00

PATIENT
  Sex: Female
  Weight: 63 kg

DRUGS (1)
  1. VERCYTE [Suspect]
     Indication: POLYCYTHAEMIA VERA
     Route: 048
     Dates: start: 20070201, end: 20070501

REACTIONS (5)
  - AGRANULOCYTOSIS [None]
  - ANAEMIA [None]
  - APLASIA [None]
  - BONE MARROW FAILURE [None]
  - PANCYTOPENIA [None]
